FAERS Safety Report 5844595-X (Version None)
Quarter: 2008Q3

REPORT INFORMATION
  Report Type: 
  Country: None (occurrence: None)
  Receive Date: 20080812
  Receipt Date: 20080725
  Transmission Date: 20090109
  Serious: Yes (Hospitalization, Other)
  Sender: FDA-Public Use
  Company Number: 2008BI017941

PATIENT
  Age: 56 Year
  Sex: Female

DRUGS (6)
  1. ZEVALIN [Suspect]
     Indication: NON-HODGKIN'S LYMPHOMA
     Dosage: 1X; IV
     Route: 042
     Dates: start: 20080522, end: 20080522
  2. RITUXIMAB [Concomitant]
  3. CARMUSTINE [Concomitant]
  4. ETOPOSIDE [Concomitant]
  5. CYTARABINE [Concomitant]
  6. MELPHALAN [Concomitant]

REACTIONS (15)
  - ABDOMINAL DISTENSION [None]
  - ACUTE CORONARY SYNDROME [None]
  - BLOOD CULTURE POSITIVE [None]
  - BRONCHOSPASM [None]
  - CANDIDIASIS [None]
  - CONFUSIONAL STATE [None]
  - DIARRHOEA [None]
  - DRUG HYPERSENSITIVITY [None]
  - DYSPNOEA [None]
  - ENTEROBACTER INFECTION [None]
  - FLUID RETENTION [None]
  - HYPOPROTEINAEMIA [None]
  - ORAL HERPES [None]
  - SEPTIC SHOCK [None]
  - STREPTOCOCCAL INFECTION [None]
